FAERS Safety Report 21820466 (Version 4)
Quarter: 2023Q1

REPORT INFORMATION
  Report Type: Report from Study
  Country: FR (occurrence: None)
  Receive Date: 20230105
  Receipt Date: 20230316
  Transmission Date: 20230417
  Serious: Yes (Hospitalization)
  Sender: FDA-Public Use
  Company Number: FR-ROCHE-3213286

PATIENT
  Age: 52 Year
  Sex: Female
  Weight: 70 kg

DRUGS (12)
  1. MOSUNETUZUMAB [Suspect]
     Active Substance: MOSUNETUZUMAB
     Indication: Non-Hodgkin^s lymphoma recurrent
     Dosage: ON 28/OCT/2022 AT 10:28 AM TO 2:28 PM, SHE RECEIVED THE MOST RECENT DOSE OF MOSUNETUZUMAB (30 MG) PR
     Route: 042
     Dates: start: 20221014
  2. DAFALGAN [Concomitant]
     Active Substance: ACETAMINOPHEN
     Indication: Pain
     Route: 048
     Dates: start: 20221013
  3. DAFALGAN [Concomitant]
     Active Substance: ACETAMINOPHEN
     Route: 048
     Dates: start: 20221013, end: 20221030
  4. BACTRIM [Concomitant]
     Active Substance: SULFAMETHOXAZOLE\TRIMETHOPRIM
     Route: 048
     Dates: start: 20221014, end: 20221031
  5. VALACYCLOVIR HYDROCHLORIDE [Concomitant]
     Active Substance: VALACYCLOVIR HYDROCHLORIDE
     Route: 048
     Dates: start: 20221014, end: 20221108
  6. FUNGIZONE [Concomitant]
     Active Substance: AMPHOTERICIN B
     Indication: Oral candidiasis
     Dosage: ML
     Route: 048
     Dates: start: 20221014
  7. LEVOFLOXACIN [Concomitant]
     Active Substance: LEVOFLOXACIN
     Indication: Cystitis
     Route: 048
     Dates: start: 202211, end: 202211
  8. LEVOCETIRIZINE [Concomitant]
     Active Substance: LEVOCETIRIZINE
     Indication: Rash
     Route: 048
     Dates: start: 20221030, end: 20221126
  9. GLYCERIN\MINERAL OIL\PETROLATUM [Concomitant]
     Active Substance: GLYCERIN\MINERAL OIL\PETROLATUM
     Indication: Rash
     Route: 062
     Dates: start: 20221031, end: 202211
  10. NITROFURANTOIN [Concomitant]
     Active Substance: NITROFURANTOIN
     Indication: Cystitis
     Route: 048
     Dates: start: 202211, end: 202211
  11. PANTOPRAZOLE [Concomitant]
     Active Substance: PANTOPRAZOLE
     Indication: Abdominal pain upper
     Route: 048
     Dates: start: 20221020, end: 20221020
  12. ALLOPURINOL [Concomitant]
     Active Substance: ALLOPURINOL
     Route: 048
     Dates: start: 20221014, end: 20221108

REACTIONS (2)
  - Cytokine release syndrome [Recovered/Resolved]
  - Infusion related reaction [Recovered/Resolved]

NARRATIVE: CASE EVENT DATE: 20221029
